FAERS Safety Report 14534003 (Version 2)
Quarter: 2018Q2

REPORT INFORMATION
  Report Type: Spontaneous
  Country: US (occurrence: US)
  Receive Date: 20180215
  Receipt Date: 20180416
  Transmission Date: 20180711
  Serious: No
  Sender: FDA-Public Use
  Company Number: US-PFIZER INC-2018062100

PATIENT
  Age: 71 Year
  Sex: Female

DRUGS (2)
  1. EUCRISA [Suspect]
     Active Substance: CRISABOROLE
     Indication: TRICHOPHYTIC GRANULOMA
     Dosage: UNK, 2X/DAY (APPLY TO AFFECTED AREA TWICE A DAY)
  2. EUCRISA [Suspect]
     Active Substance: CRISABOROLE
     Indication: CHRONIC PIGMENTED PURPURA
     Dosage: 60 G, 2X/DAY
     Route: 061
     Dates: start: 201711, end: 201712

REACTIONS (4)
  - Drug hypersensitivity [Recovered/Resolved]
  - Product use in unapproved indication [Unknown]
  - Application site erythema [Unknown]
  - Application site pain [Unknown]

NARRATIVE: CASE EVENT DATE: 201711
